FAERS Safety Report 8336999-0 (Version None)
Quarter: 2012Q2

REPORT INFORMATION
  Report Type: 
  Country: None (occurrence: None)
  Receive Date: 20120504
  Receipt Date: 20120423
  Transmission Date: 20120825
  Serious: Yes (Death)
  Sender: FDA-Public Use
  Company Number: CN-PFIZER INC-2012078870

PATIENT
  Age: 57 Year
  Sex: Male
  Weight: 51 kg

DRUGS (1)
  1. CRIZOTINIB [Suspect]
     Indication: NEOPLASM MALIGNANT
     Dosage: 250 MG, 2X/DAY
     Route: 048
     Dates: start: 20120307, end: 20120321

REACTIONS (7)
  - MULTI-ORGAN FAILURE [None]
  - BLOOD POTASSIUM DECREASED [None]
  - BLOOD ALBUMIN DECREASED [None]
  - ALANINE AMINOTRANSFERASE INCREASED [None]
  - INTERSTITIAL LUNG DISEASE [None]
  - ASPARTATE AMINOTRANSFERASE INCREASED [None]
  - BLOOD BILIRUBIN INCREASED [None]
